FAERS Safety Report 19451982 (Version 1)
Quarter: 2021Q2

REPORT INFORMATION
  Report Type: Spontaneous
  Country: US (occurrence: US)
  Receive Date: 20210623
  Receipt Date: 20210623
  Transmission Date: 20210717
  Serious: Yes (Other)
  Sender: FDA-Public Use
  Company Number: None

PATIENT
  Age: 35 Year
  Sex: Male
  Weight: 79.29 kg

DRUGS (7)
  1. PANTOPRAZOLE 40MG [Concomitant]
     Active Substance: PANTOPRAZOLE SODIUM
  2. RISPERIDONE 5ML [Concomitant]
  3. ISONIAZID 900MG [Concomitant]
  4. RIFAPENTINE 900MG [Concomitant]
     Active Substance: RIFAPENTINE
  5. TRAZODONE [Suspect]
     Active Substance: TRAZODONE HYDROCHLORIDE
     Dates: start: 20210401, end: 20210414
  6. LITHIUM ER 450MG [Concomitant]
  7. VENLAFAXINE [Concomitant]
     Active Substance: VENLAFAXINE HYDROCHLORIDE

REACTIONS (2)
  - Erection increased [None]
  - Painful erection [None]

NARRATIVE: CASE EVENT DATE: 20210410
